FAERS Safety Report 5748584-5 (Version None)
Quarter: 2008Q2

REPORT INFORMATION
  Report Type: 
  Country: None (occurrence: None)
  Receive Date: 20080523
  Receipt Date: 20080515
  Transmission Date: 20081010
  Serious: Yes (Hospitalization)
  Sender: FDA-Public Use
  Company Number: FR-PFIZER INC-2008042388

PATIENT
  Age: 52 Year
  Sex: Male

DRUGS (5)
  1. SALAZOPYRINE [Suspect]
     Indication: MUSCULOSKELETAL PAIN
     Route: 048
     Dates: start: 20080222, end: 20080325
  2. BREXIN [Suspect]
     Indication: MUSCULOSKELETAL PAIN
     Route: 048
     Dates: start: 20080222, end: 20080325
  3. OMEPRAZOLE [Suspect]
     Route: 048
     Dates: start: 20080222, end: 20080325
  4. CIPROFLOXACIN HCL [Concomitant]
     Dates: start: 20080318, end: 20080320
  5. PREDNISONE TAB [Concomitant]

REACTIONS (1)
  - DRUG RASH WITH EOSINOPHILIA AND SYSTEMIC SYMPTOMS [None]
